FAERS Safety Report 7574446-7 (Version None)
Quarter: 2011Q2

REPORT INFORMATION
  Report Type: 
  Country: None (occurrence: None)
  Receive Date: 20110627
  Receipt Date: 20110526
  Transmission Date: 20111010
  Serious: Yes (Hospitalization)
  Sender: FDA-Public Use
  Company Number: US-BAYER-201033341NA

PATIENT
  Age: 21 Year
  Sex: Female
  Weight: 87.075 kg

DRUGS (2)
  1. YAZ [Suspect]
     Indication: PRODUCT USED FOR UNKNOWN INDICATION
     Route: 048
     Dates: start: 20080623, end: 20080829
  2. VENTOLIN HFA [Concomitant]
     Indication: ASTHMA
     Dosage: 90 MCG/1ACTUATION 2 PUFFS EVERY 4-6 HOURS AS NEEDED

REACTIONS (8)
  - DYSPNOEA [None]
  - HYPOAESTHESIA [None]
  - PULMONARY EMBOLISM [None]
  - PAIN [None]
  - ANXIETY [None]
  - PLEURITIC PAIN [None]
  - INJURY [None]
  - EMOTIONAL DISTRESS [None]
